FAERS Safety Report 14599005 (Version 1)
Quarter: 2018Q1

REPORT INFORMATION
  Report Type: Spontaneous
  Country: US (occurrence: US)
  Receive Date: 20180302
  Receipt Date: 20180302
  Transmission Date: 20180509
  Serious: Yes (Other)
  Sender: FDA-Public Use
  Company Number: None

PATIENT
  Age: 56 Year
  Sex: Female
  Weight: 61.65 kg

DRUGS (5)
  1. METOPROLOL SUCCINATE ER 24 HR [Concomitant]
  2. TYLENOL [Concomitant]
     Active Substance: ACETAMINOPHEN
  3. VALSARTAN. [Concomitant]
     Active Substance: VALSARTAN
  4. POTASSIUM CHLORIDE ER [Concomitant]
     Active Substance: POTASSIUM CHLORIDE
  5. AMLODIPINE BESYLAT [Suspect]
     Active Substance: AMLODIPINE BESYLATE
     Indication: HYPERTENSION
     Dosage: ?          QUANTITY:1 TABLET(S);?
     Route: 048
     Dates: start: 20180211, end: 20180216

REACTIONS (8)
  - Drug ineffective [None]
  - Dizziness [None]
  - Flushing [None]
  - Headache [None]
  - Pain [None]
  - Blood pressure increased [None]
  - Product substitution issue [None]
  - Middle insomnia [None]

NARRATIVE: CASE EVENT DATE: 20180211
